FAERS Safety Report 10078547 (Version 1)
Quarter: 2014Q2

REPORT INFORMATION
  Report Type: Spontaneous
  Country: GB (occurrence: GB)
  Receive Date: 20140415
  Receipt Date: 20140415
  Transmission Date: 20141212
  Serious: Yes (Other)
  Sender: FDA-Public Use
  Company Number: GB-JNJFOC-20140401160

PATIENT
  Age: 5 Month
  Sex: Male
  Weight: 7.7 kg

DRUGS (2)
  1. CALPOL [Suspect]
     Indication: GINGIVAL PAIN
     Route: 048
     Dates: start: 20140303, end: 20140303
  2. OMEPRAZOLE [Concomitant]
     Route: 065

REACTIONS (11)
  - Aspiration [Recovered/Resolved]
  - Retching [Recovered/Resolved]
  - Cough [Recovered/Resolved]
  - Vomiting [Recovered/Resolved]
  - Foaming at mouth [Recovered/Resolved]
  - Choking [Recovered/Resolved]
  - Hypotonia [Recovered/Resolved]
  - Somnolence [Unknown]
  - Pallor [Unknown]
  - Breath sounds abnormal [Unknown]
  - Wheezing [Unknown]
